FAERS Safety Report 12686974 (Version 1)
Quarter: 2016Q3

REPORT INFORMATION
  Report Type: Spontaneous
  Country: FR (occurrence: FR)
  Receive Date: 20160826
  Receipt Date: 20160826
  Transmission Date: 20161109
  Serious: Yes (Death, Hospitalization)
  Sender: FDA-Public Use
  Company Number: FR-BAXTER-2016BAX043216

PATIENT
  Age: 63 Year
  Sex: Male
  Weight: 76 kg

DRUGS (19)
  1. ENDOXAN 1000 MG, POUDRE POUR SOLUTION INJECTABLE [Suspect]
     Active Substance: CYCLOPHOSPHAMIDE
     Indication: PERIPHERAL T-CELL LYMPHOMA UNSPECIFIED STAGE II
     Dosage: IV (INFUSION), DAY 1
     Route: 042
     Dates: start: 20160106, end: 20160106
  2. ETOPOSIDE TEVA [Suspect]
     Active Substance: ETOPOSIDE
     Indication: PERIPHERAL T-CELL LYMPHOMA UNSPECIFIED STAGE II
     Dosage: SOLUTION FOR DILUTION FOR INFUSION, DAY 2
     Route: 042
     Dates: start: 20160107, end: 20160107
  3. ZYLORIC [Concomitant]
     Active Substance: ALLOPURINOL
     Indication: PROPHYLAXIS
     Route: 048
  4. VINCRISTINE HOSPIRA [Suspect]
     Active Substance: VINCRISTINE
     Indication: PERIPHERAL T-CELL LYMPHOMA UNSPECIFIED STAGE II
     Dosage: STRENGTH 2 MG/2 ML, IV (INFUSION), DAY 1
     Route: 042
     Dates: start: 20160106, end: 20160106
  5. LEDERFOLINE [Concomitant]
     Active Substance: LEUCOVORIN CALCIUM
     Indication: PROPHYLAXIS
     Route: 048
  6. CORTANCYL [Suspect]
     Active Substance: PREDNISONE
     Dosage: DAY 5
     Route: 048
     Dates: start: 20160110, end: 20160110
  7. ONDANSETRON ACCORD [Suspect]
     Active Substance: ONDANSETRON
     Indication: PRODUCT USED FOR UNKNOWN INDICATION
     Dosage: IV (INFUSION), DAY 1
     Route: 042
     Dates: start: 20160106, end: 20160106
  8. ONDANSETRON ACCORD [Suspect]
     Active Substance: ONDANSETRON
     Dosage: IV (INFUSION), DAY 3
     Route: 042
     Dates: start: 20160108, end: 20160108
  9. CORTANCYL [Suspect]
     Active Substance: PREDNISONE
     Indication: PERIPHERAL T-CELL LYMPHOMA UNSPECIFIED STAGE II
     Dosage: DAY 4
     Route: 048
     Dates: start: 20160109, end: 20160109
  10. METHYLPREDNISOLONE. [Suspect]
     Active Substance: METHYLPREDNISOLONE
     Dosage: IV (INFUSION), DAY 3
     Route: 042
     Dates: start: 20160108, end: 20160108
  11. METHYLPREDNISOLONE. [Suspect]
     Active Substance: METHYLPREDNISOLONE
     Indication: PRODUCT USED FOR UNKNOWN INDICATION
     Dosage: IV (INFUSION), DAY 1
     Route: 042
     Dates: start: 20160106, end: 20160106
  12. ONDANSETRON ACCORD [Suspect]
     Active Substance: ONDANSETRON
     Dosage: IV (INFUSION), DAY 2
     Route: 042
     Dates: start: 20160107, end: 20160107
  13. ZELITREX [Concomitant]
     Active Substance: VALACYCLOVIR HYDROCHLORIDE
     Indication: PROPHYLAXIS
     Route: 048
  14. BACTRIM [Concomitant]
     Active Substance: SULFAMETHOXAZOLE\TRIMETHOPRIM
     Indication: PROPHYLAXIS
     Route: 048
  15. DOXORUBICINE TEVA [Suspect]
     Active Substance: DOXORUBICIN
     Indication: PERIPHERAL T-CELL LYMPHOMA UNSPECIFIED STAGE II
     Dosage: STRENGTH 200 MG/100 ML, IV (INFUSION), DAY 1
     Route: 042
     Dates: start: 20160106, end: 20160106
  16. ETOPOSIDE TEVA [Suspect]
     Active Substance: ETOPOSIDE
     Dosage: SOLUTION FOR DILUTION FOR INFUSION, DAY 3
     Route: 042
     Dates: start: 20160108, end: 20160108
  17. METHOTREXATE. [Suspect]
     Active Substance: METHOTREXATE
     Indication: PRODUCT USED FOR UNKNOWN INDICATION
     Dosage: DAY 1
     Route: 037
     Dates: start: 20160106, end: 20160106
  18. METHYLPREDNISOLONE. [Suspect]
     Active Substance: METHYLPREDNISOLONE
     Dosage: IV (INFUSION), DAY 2
     Route: 042
     Dates: start: 20160107, end: 20160107
  19. GRANOCYTE [Suspect]
     Active Substance: LENOGRASTIM
     Indication: PRODUCT USED FOR UNKNOWN INDICATION
     Dosage: FROM DAY 6 TO DAY 12
     Route: 065
     Dates: start: 20160111, end: 20160117

REACTIONS (6)
  - Acute prerenal failure [Fatal]
  - Escherichia sepsis [Fatal]
  - Febrile bone marrow aplasia [Fatal]
  - Diarrhoea [Unknown]
  - Cardiac arrest [Fatal]
  - Septic shock [Fatal]

NARRATIVE: CASE EVENT DATE: 201601
